FAERS Safety Report 7190159-8 (Version None)
Quarter: 2010Q4

REPORT INFORMATION
  Report Type: 
  Country: None (occurrence: None)
  Receive Date: 20101213
  Receipt Date: 20101111
  Transmission Date: 20110411
  Serious: Yes (Hospitalization)
  Sender: FDA-Public Use
  Company Number: GER/UKI/10/0016848

PATIENT
  Age: 14 Year
  Sex: Female

DRUGS (5)
  1. CETIRIZINE HCL [Suspect]
     Indication: ALLERGY TO ANIMAL
     Dosage: ORAL
     Route: 048
  2. CETIRIZINE HCL [Suspect]
     Indication: SEASONAL ALLERGY
     Dosage: ORAL
     Route: 048
  3. LORATADINE [Suspect]
     Indication: ALLERGY TO ANIMAL
     Dosage: ORAL
     Route: 048
  4. LORATADINE [Suspect]
     Indication: SEASONAL ALLERGY
     Dosage: ORAL
     Route: 048
  5. FLUOXETINE [Concomitant]

REACTIONS (1)
  - LOSS OF CONSCIOUSNESS [None]
